FAERS Safety Report 16672110 (Version 2)
Quarter: 2019Q3

REPORT INFORMATION
  Report Type: Spontaneous
  Country: US (occurrence: US)
  Receive Date: 20190806
  Receipt Date: 20190827
  Transmission Date: 20191004
  Serious: No
  Sender: FDA-Public Use
  Company Number: US-PFIZER INC-2019292758

PATIENT
  Age: 71 Year
  Sex: Female

DRUGS (1)
  1. IBRANCE [Suspect]
     Active Substance: PALBOCICLIB
     Indication: BREAST CANCER FEMALE
     Dosage: 125 MG, 1X/DAY (1 CAPSULE WITH FOOD ONCE A DAY 30 DAYS)
     Route: 048

REACTIONS (3)
  - Diarrhoea [Not Recovered/Not Resolved]
  - Pain in extremity [Not Recovered/Not Resolved]
  - Night sweats [Not Recovered/Not Resolved]
